FAERS Safety Report 7428760-6 (Version None)
Quarter: 2011Q2

REPORT INFORMATION
  Report Type: 
  Country: None (occurrence: None)
  Receive Date: 20110421
  Receipt Date: 20110418
  Transmission Date: 20111010
  Serious: Yes (Hospitalization, Other)
  Sender: FDA-Public Use
  Company Number: US-PFIZER INC-2011085407

PATIENT
  Age: 60 Year
  Sex: Female

DRUGS (2)
  1. CYMBALTA [Suspect]
     Indication: DEPRESSION
     Dosage: UNK
     Dates: start: 20060101
  2. XANAX [Suspect]
     Dosage: UNK

REACTIONS (13)
  - PARALYSIS [None]
  - LIVER DISORDER [None]
  - MUSCULOSKELETAL STIFFNESS [None]
  - MEMORY IMPAIRMENT [None]
  - SPINAL FRACTURE [None]
  - MULTIPLE FRACTURES [None]
  - HYPOAESTHESIA [None]
  - GRAND MAL CONVULSION [None]
  - LOSS OF CONSCIOUSNESS [None]
  - FALL [None]
  - WITHDRAWAL SYNDROME [None]
  - CONFUSIONAL STATE [None]
  - DYSKINESIA [None]
